FAERS Safety Report 8720519 (Version 2)
Quarter: 2013Q4

REPORT INFORMATION
  Report Type: Spontaneous
  Country: US (occurrence: US)
  Receive Date: 20120813
  Receipt Date: 20131031
  Transmission Date: 20140711
  Serious: No
  Sender: FDA-Public Use
  Company Number: US-009507513-2012SP010309

PATIENT
  Age: 71 Year
  Sex: Female
  Weight: 65.32 kg

DRUGS (3)
  1. MIRALAX [Suspect]
     Indication: MEDICAL OBSERVATION
  2. MIRALAX [Suspect]
     Indication: POLYP
  3. MIRALAX [Suspect]
     Indication: FUNCTIONAL GASTROINTESTINAL DISORDER
     Dosage: 17 G, QD
     Route: 048
     Dates: start: 2009

REACTIONS (5)
  - Glossodynia [Not Recovered/Not Resolved]
  - Glossodynia [Not Recovered/Not Resolved]
  - Foreign body [Not Recovered/Not Resolved]
  - Off label use [Not Recovered/Not Resolved]
  - Incorrect drug administration duration [Not Recovered/Not Resolved]
